FAERS Safety Report 22370714 (Version 2)
Quarter: 2023Q2

REPORT INFORMATION
  Report Type: Spontaneous
  Country: CH (occurrence: CH)
  Receive Date: 20230526
  Receipt Date: 20230630
  Transmission Date: 20230722
  Serious: Yes (Hospitalization, Other)
  Sender: FDA-Public Use
  Company Number: CH-PFIZER INC-PV202300090781

PATIENT
  Age: 49 Year
  Sex: Female

DRUGS (6)
  1. VORICONAZOLE [Interacting]
     Active Substance: VORICONAZOLE
     Indication: Prophylaxis
     Dosage: 6 MG/KG, 2X/DAY (LOADING DOSE)
     Route: 042
  2. VORICONAZOLE [Interacting]
     Active Substance: VORICONAZOLE
     Dosage: 4 MG/KG, 2X/DAY (MAINTENANCE DOSE)
     Route: 042
  3. VORICONAZOLE [Interacting]
     Active Substance: VORICONAZOLE
     Dosage: 200 MG/KG, 2X/DAY
     Route: 042
  4. MIDOSTAURIN [Interacting]
     Active Substance: MIDOSTAURIN
     Indication: Acute myeloid leukaemia
     Dosage: 50 MG, 2X/DAY (SECOND CYCLE)
  5. DAUNORUBICIN [Concomitant]
     Active Substance: DAUNORUBICIN
     Indication: Acute myeloid leukaemia
     Dosage: 60 MG/M2, CYCLIC FROM D43 TO D45, SECOND CYCLE
  6. CYTARABINE [Concomitant]
     Active Substance: CYTARABINE
     Indication: Acute myeloid leukaemia
     Dosage: 1000 MG/M2, CYCLIC FROM D43 TO D49 SECOND CYCLE

REACTIONS (1)
  - Drug interaction [Unknown]
